FAERS Safety Report 18123832 (Version 1)
Quarter: 2020Q3

REPORT INFORMATION
  Report Type: Spontaneous
  Country: US (occurrence: US)
  Receive Date: 20200807
  Receipt Date: 20200807
  Transmission Date: 20201103
  Serious: Yes (Life-Threatening, Hospitalization)
  Sender: FDA-Public Use
  Company Number: US-MYLANLABS-2020M1069317

PATIENT
  Age: 43 Year
  Sex: Male

DRUGS (10)
  1. ZONISAMIDE. [Interacting]
     Active Substance: ZONISAMIDE
     Dosage: 350 MILLIGRAM, QD
     Route: 065
  2. ZONISAMIDE. [Interacting]
     Active Substance: ZONISAMIDE
     Dosage: 500 MILLIGRAM, QD
     Route: 065
  3. LORAZEPAM. [Concomitant]
     Active Substance: LORAZEPAM
     Indication: STATUS EPILEPTICUS
     Dosage: UNK
     Route: 042
  4. LEVETIRACETAM. [Concomitant]
     Active Substance: LEVETIRACETAM
     Indication: EPILEPSY
     Dosage: 2000 MILLIGRAM, 0.5 DAY
     Route: 065
  5. VALPROIC ACID. [Suspect]
     Active Substance: VALPROIC ACID
     Indication: EPILEPSY
     Dosage: 1500 MILLIGRAM, QD
     Route: 065
  6. VALPROIC ACID. [Interacting]
     Active Substance: VALPROIC ACID
     Dosage: 2000 MILLIGRAM, QD
     Route: 065
  7. VALPROIC ACID. [Interacting]
     Active Substance: VALPROIC ACID
     Dosage: 750 MILLIGRAM
     Route: 042
  8. ZONISAMIDE. [Interacting]
     Active Substance: ZONISAMIDE
     Indication: EPILEPSY
     Dosage: 50 MILLIGRAM, QD
     Route: 065
  9. ZONISAMIDE. [Interacting]
     Active Substance: ZONISAMIDE
     Dosage: 600 MILLIGRAM, QD
     Route: 065
  10. LEVETIRACETAM. [Concomitant]
     Active Substance: LEVETIRACETAM
     Dosage: 4000 MILLIGRAM, QD
     Route: 065

REACTIONS (8)
  - Weight increased [Unknown]
  - Respiratory distress [Recovering/Resolving]
  - Drug interaction [Recovering/Resolving]
  - Hyperammonaemic encephalopathy [Recovering/Resolving]
  - Pneumonia [Recovering/Resolving]
  - Aminoaciduria [Recovering/Resolving]
  - Metabolic acidosis [Recovering/Resolving]
  - Cytotoxic oedema [Recovering/Resolving]
